FAERS Safety Report 9774702 (Version 2)
Quarter: 2014Q1

REPORT INFORMATION
  Report Type: Spontaneous
  Country: US (occurrence: US)
  Receive Date: 20131220
  Receipt Date: 20140109
  Transmission Date: 20141002
  Serious: No
  Sender: FDA-Public Use
  Company Number: US-PFIZER INC-2013364730

PATIENT
  Age: 46 Year
  Sex: Male
  Weight: 86.17 kg

DRUGS (4)
  1. CHANTIX [Suspect]
     Indication: SMOKING CESSATION THERAPY
     Dosage: UNK
     Route: 048
     Dates: start: 201311, end: 201311
  2. CHANTIX [Suspect]
     Dosage: 1 MG, DAILY
     Route: 048
     Dates: start: 201311, end: 2013
  3. CHANTIX [Suspect]
     Dosage: 1 MG, 2X/DAY
     Route: 048
     Dates: start: 2013, end: 2013
  4. CHANTIX [Suspect]
     Dosage: 1 MG, DAILY
     Route: 048
     Dates: start: 2013

REACTIONS (3)
  - Abdominal discomfort [Unknown]
  - Vomiting [Unknown]
  - Irritability [Unknown]
